FAERS Safety Report 14524050 (Version 1)
Quarter: 2018Q1

REPORT INFORMATION
  Report Type: Report from Study
  Country: None (occurrence: GB)
  Receive Date: 20180213
  Receipt Date: 20180213
  Transmission Date: 20180509
  Serious: Yes (Hospitalization, Other)
  Sender: FDA-Public Use
  Company Number: GB-ABBVIE-18K-167-2251082-00

PATIENT
  Sex: Female

DRUGS (2)
  1. HUMIRA [Suspect]
     Active Substance: ADALIMUMAB
     Indication: CROHN^S DISEASE
     Route: 058
  2. HUMIRA [Suspect]
     Active Substance: ADALIMUMAB
     Route: 058
     Dates: start: 2018

REACTIONS (11)
  - Infection [Unknown]
  - Laceration [Unknown]
  - Rash macular [Unknown]
  - Vitamin B12 abnormal [Unknown]
  - Adverse drug reaction [Unknown]
  - Musculoskeletal disorder [Unknown]
  - Impaired healing [Unknown]
  - Renal disorder [Unknown]
  - Hospitalisation [Unknown]
  - Malaise [Unknown]
  - Vitamin D abnormal [Unknown]
